FAERS Safety Report 9055325 (Version 1)
Quarter: 2013Q1

REPORT INFORMATION
  Report Type: Spontaneous
  Country: JP (occurrence: JP)
  Receive Date: 20130206
  Receipt Date: 20130206
  Transmission Date: 20140127
  Serious: Yes (Death, Hospitalization, Other)
  Sender: FDA-Public Use
  Company Number: JP-ASTRAZENECA-2004SE06916

PATIENT
  Age: 95 Year
  Sex: Male
  Weight: 75 kg

DRUGS (10)
  1. BLOPRESS [Suspect]
     Indication: HYPERTENSION
     Route: 048
     Dates: start: 20041111, end: 20041115
  2. BLOPRESS [Suspect]
     Indication: HYPERTENSION
     Route: 048
     Dates: start: 20041116, end: 20041120
  3. DIART [Suspect]
     Indication: PULMONARY CONGESTION
     Route: 048
     Dates: start: 20041111, end: 20041120
  4. HALFDIGOXIN [Suspect]
     Indication: ATRIAL FIBRILLATION
     Route: 048
     Dates: start: 20041109, end: 20041120
  5. PREDNISOLONE [Suspect]
     Indication: HENOCH-SCHONLEIN PURPURA NEPHRITIS
     Route: 048
  6. WARFARIN [Concomitant]
     Indication: ATRIAL FIBRILLATION
     Route: 048
     Dates: end: 20041106
  7. WARFARIN [Concomitant]
     Indication: ATRIAL FIBRILLATION
     Route: 048
     Dates: start: 20041112, end: 20041114
  8. WARFARIN [Concomitant]
     Indication: ATRIAL FIBRILLATION
     Route: 048
     Dates: start: 20040115, end: 20041117
  9. WARFARIN [Concomitant]
     Indication: ATRIAL FIBRILLATION
     Route: 048
     Dates: start: 20041118, end: 20041122
  10. THEODUR [Concomitant]
     Indication: ASTHMA
     Route: 048
     Dates: end: 20041122

REACTIONS (8)
  - Sepsis [Fatal]
  - Rash generalised [Fatal]
  - Renal impairment [Fatal]
  - Vasculitis [Fatal]
  - Henoch-Schonlein purpura [Fatal]
  - Henoch-Schonlein purpura nephritis [Fatal]
  - Cytomegalovirus colitis [Fatal]
  - Cellulitis [Unknown]
